FAERS Safety Report 21955401 (Version 1)
Quarter: 2023Q1

REPORT INFORMATION
  Report Type: Spontaneous
  Country: AU (occurrence: AU)
  Receive Date: 20230206
  Receipt Date: 20230206
  Transmission Date: 20230418
  Serious: Yes (Hospitalization, Other)
  Sender: FDA-Public Use
  Company Number: AU-NOVOPROD-1018748

PATIENT
  Sex: Female
  Weight: 100 kg

DRUGS (1)
  1. SAXENDA [Suspect]
     Active Substance: LIRAGLUTIDE
     Indication: Product used for unknown indication
     Dosage: 3 MG
     Dates: start: 202203, end: 202212

REACTIONS (2)
  - Obstructive pancreatitis [Unknown]
  - Cholelithiasis [Unknown]
